FAERS Safety Report 17444701 (Version 2)
Quarter: 2020Q2

REPORT INFORMATION
  Report Type: Spontaneous
  Country: PL (occurrence: PL)
  Receive Date: 20200221
  Receipt Date: 20200407
  Transmission Date: 20200713
  Serious: Yes (Other)
  Sender: FDA-Public Use
  Company Number: PL-MYLANLABS-2020M1018579

PATIENT
  Sex: Female

DRUGS (4)
  1. SPIRONOL [Concomitant]
     Active Substance: SPIRONOLACTONE
     Dosage: UNK
  2. LIPANTHYL [Suspect]
     Active Substance: FENOFIBRATE
     Indication: BLOOD CHOLESTEROL
     Dosage: 1 DOSAGE FORM, QD
     Route: 065
     Dates: start: 202002
  3. DIURESIN [Concomitant]
     Active Substance: INDAPAMIDE
     Dosage: UNK
  4. CONCOR [Concomitant]
     Active Substance: BISOPROLOL FUMARATE
     Dosage: UNK

REACTIONS (1)
  - Nephrolithiasis [Recovered/Resolved]

NARRATIVE: CASE EVENT DATE: 202002
